FAERS Safety Report 4996201-4 (Version None)
Quarter: 2006Q2

REPORT INFORMATION
  Report Type: 
  Country: None (occurrence: None)
  Receive Date: 20060504
  Receipt Date: 20060421
  Transmission Date: 20061013
  Serious: Yes (Other)
  Sender: FDA-Public Use
  Company Number: B0421831A

PATIENT
  Sex: Female

DRUGS (3)
  1. COMBIVIR [Suspect]
     Indication: HIV INFECTION
     Dosage: UNKNOWN
     Route: 065
  2. NEVIRAPINE [Suspect]
     Indication: HIV INFECTION
     Dosage: 200 MG / SEE DOSAGE TEXT / UNKNOWN
     Route: 065
  3. NELFINAVIR MESYLATE (NELFINAVIR MESYLATE) [Suspect]
     Dosage: UNKNOWN
     Route: 065

REACTIONS (5)
  - CHOLESTASIS OF PREGNANCY [None]
  - DRUG EXPOSURE DURING PREGNANCY [None]
  - FOETAL MOVEMENTS DECREASED [None]
  - HEPATOTOXICITY [None]
  - INTRA-UTERINE DEATH [None]
